FAERS Safety Report 21774825 (Version 3)
Quarter: 2023Q2

REPORT INFORMATION
  Report Type: Report from Study
  Country: CA (occurrence: CA)
  Receive Date: 20221224
  Receipt Date: 20230428
  Transmission Date: 20230721
  Serious: Yes (Other)
  Sender: FDA-Public Use
  Company Number: CA-TAKEDA-2022TUS098927

PATIENT
  Age: 5 Year
  Sex: Male
  Weight: 26 kg

DRUGS (25)
  1. ADVATE [Suspect]
     Active Substance: ANTIHEMOPHILIC FACTOR, HUMAN RECOMBINANT
     Indication: Factor VIII deficiency
     Dosage: UNK
     Route: 042
     Dates: start: 20210602
  2. ADVATE [Suspect]
     Active Substance: ANTIHEMOPHILIC FACTOR, HUMAN RECOMBINANT
     Indication: Factor VIII deficiency
     Dosage: UNK
     Route: 042
     Dates: start: 20210602
  3. ADVATE [Suspect]
     Active Substance: ANTIHEMOPHILIC FACTOR, HUMAN RECOMBINANT
     Indication: Factor VIII deficiency
     Dosage: UNK
     Route: 042
     Dates: start: 20210602
  4. ADVATE [Suspect]
     Active Substance: ANTIHEMOPHILIC FACTOR, HUMAN RECOMBINANT
     Indication: Prophylaxis
  5. ADVATE [Suspect]
     Active Substance: ANTIHEMOPHILIC FACTOR, HUMAN RECOMBINANT
     Indication: Prophylaxis
  6. ADVATE [Suspect]
     Active Substance: ANTIHEMOPHILIC FACTOR, HUMAN RECOMBINANT
     Indication: Prophylaxis
  7. ANTIHEMOPHILIC FACTOR, PEGYLATED (MW 20000) HUMAN SEQUENCE RECOMBINANT [Suspect]
     Active Substance: ANTIHEMOPHILIC FACTOR, PEGYLATED (MW 20000) HUMAN SEQUENCE RECOMBINANT
     Indication: Prophylaxis
     Dosage: 1000 INTERNATIONAL UNIT, 2/WEEK
     Route: 065
     Dates: start: 20190531
  8. ANTIHEMOPHILIC FACTOR, PEGYLATED (MW 20000) HUMAN SEQUENCE RECOMBINANT [Suspect]
     Active Substance: ANTIHEMOPHILIC FACTOR, PEGYLATED (MW 20000) HUMAN SEQUENCE RECOMBINANT
     Indication: Prophylaxis
     Dosage: 1000 INTERNATIONAL UNIT, 2/WEEK
     Route: 065
     Dates: start: 20190531
  9. ANTIHEMOPHILIC FACTOR, PEGYLATED (MW 20000) HUMAN SEQUENCE RECOMBINANT [Suspect]
     Active Substance: ANTIHEMOPHILIC FACTOR, PEGYLATED (MW 20000) HUMAN SEQUENCE RECOMBINANT
     Indication: Prophylaxis
     Dosage: 1000 INTERNATIONAL UNIT, 2/WEEK
     Route: 065
     Dates: start: 20190531
  10. Maxilene [Concomitant]
     Indication: Anaesthetic premedication
     Dosage: 0.5 INTERNATIONAL UNIT
     Route: 065
     Dates: start: 20210602
  11. BUPIVACAINE\EPINEPHRINE [Concomitant]
     Active Substance: BUPIVACAINE\EPINEPHRINE
     Indication: Biopsy lymph gland
     Dosage: 6 MILLILITER, QD
     Route: 065
     Dates: start: 20210602
  12. ONDANSETRON [Concomitant]
     Active Substance: ONDANSETRON
     Indication: Biopsy lymph gland
     Dosage: 3 MILLIGRAM, QD
     Route: 065
     Dates: start: 20210602
  13. ONDANSETRON [Concomitant]
     Active Substance: ONDANSETRON
     Indication: Prophylaxis of nausea and vomiting
  14. PROPOFOL [Concomitant]
     Active Substance: PROPOFOL
     Indication: Sedation
     Dosage: UNK UNK, QD
     Route: 065
     Dates: start: 20210602
  15. PRECEDEX [Concomitant]
     Active Substance: DEXMEDETOMIDINE HYDROCHLORIDE
     Indication: Sedation
     Dosage: 6 MICROGRAM, QD
     Route: 065
     Dates: start: 20210602
  16. NITROUS OXIDE [Concomitant]
     Active Substance: NITROUS OXIDE
     Indication: Biopsy lymph gland
     Dosage: 50 PERCENT, QD
     Route: 065
     Dates: start: 20210602
  17. AMOXICILLIN [Concomitant]
     Active Substance: AMOXICILLIN
     Indication: Lower respiratory tract infection
     Dosage: UNK UNK, TID
     Route: 065
     Dates: start: 20210729, end: 20210808
  18. FLUZONE QUADRIVALENT NOS [Concomitant]
     Active Substance: INFLUENZA A VIRUS A/CALIFORNIA/7/2009 X-179A (H1N1) ANTIGEN (FORMALDEHYDE INACTIVATED)\INFLUENZA A V
     Indication: Infection via vaccinee
     Dosage: UNK UNK, QD
     Route: 065
     Dates: start: 20211122, end: 20211122
  19. ALBUTEROL [Concomitant]
     Active Substance: ALBUTEROL
     Indication: Pneumonia
     Dosage: 100 UNK
     Route: 065
     Dates: start: 20211203, end: 20211203
  20. DEXAMETHASONE [Concomitant]
     Active Substance: DEXAMETHASONE
     Indication: Lower respiratory tract infection
     Dosage: 4 MILLIGRAM, BID
     Route: 065
     Dates: start: 20211203, end: 20211205
  21. AMOXICILLIN [Concomitant]
     Active Substance: AMOXICILLIN
     Indication: Lower respiratory tract infection
     Dosage: UNK UNK, TID
     Route: 065
     Dates: start: 20211203, end: 20211213
  22. AMOXICILLIN [Concomitant]
     Active Substance: AMOXICILLIN
     Indication: Pneumonia
     Dosage: UNK UNK, TID
     Route: 065
     Dates: start: 20220311, end: 20220319
  23. AMOXICILLIN [Concomitant]
     Active Substance: AMOXICILLIN
     Indication: Lower respiratory tract infection
  24. PFIZER-BIONTECH COVID-19 VACCINE [Concomitant]
     Active Substance: TOZINAMERAN
     Indication: COVID-19 immunisation
     Dosage: 0.2 MILLILITER, QD
     Route: 065
     Dates: start: 20211129, end: 20211129
  25. PFIZER-BIONTECH COVID-19 VACCINE [Concomitant]
     Active Substance: TOZINAMERAN
     Dosage: 0.2 UNK
     Route: 065
     Dates: start: 20220105, end: 20220105

REACTIONS (1)
  - Pneumonia [Recovered/Resolved]

NARRATIVE: CASE EVENT DATE: 20210729
